FAERS Safety Report 9070243 (Version 1)
Quarter: 2013Q1

REPORT INFORMATION
  Report Type: Spontaneous
  Country: US (occurrence: US)
  Receive Date: 20130129
  Receipt Date: 20130129
  Transmission Date: 20140127
  Serious: No
  Sender: FDA-Public Use
  Company Number: US-ABBOTT-12P-163-0925130-00

PATIENT
  Sex: Female
  Weight: 85.81 kg

DRUGS (28)
  1. HUMIRA 40 MG/0.8 ML PEN [Suspect]
     Indication: RHEUMATOID ARTHRITIS
     Dates: start: 201101
  2. JANUMET [Concomitant]
     Indication: DIABETES MELLITUS
     Dosage: 50/1000 BID
  3. CEREFORIN [Concomitant]
     Indication: VITAMIN SUPPLEMENTATION
     Dosage: 1-5-6-50-5 QD
  4. KLONOPIN [Concomitant]
     Indication: ANXIETY
     Dosage: 1-2 AT HS
  5. ABILIFY [Concomitant]
     Indication: AFFECTIVE DISORDER
  6. CYMBALTA [Concomitant]
     Indication: ANTIDEPRESSANT THERAPY
  7. LOFIBRA [Concomitant]
     Indication: BLOOD TRIGLYCERIDES
  8. LEVOTHYROXINE [Concomitant]
     Indication: THYROID DISORDER
  9. LIPITOR [Concomitant]
     Indication: BLOOD CHOLESTEROL
  10. PRAMIPEXOLE [Concomitant]
     Indication: RESTLESS LEGS SYNDROME
     Dosage: HS
  11. NEURONTIN [Concomitant]
     Indication: NEUROPATHY PERIPHERAL
  12. ZYRTEC [Concomitant]
     Indication: PRODUCT USED FOR UNKNOWN INDICATION
  13. ASTEPRO NASAL SPRAY [Concomitant]
     Indication: PRODUCT USED FOR UNKNOWN INDICATION
  14. ALBUTEROL [Concomitant]
     Indication: ASTHMA
  15. ADVAIR DISKUS [Concomitant]
     Indication: ASTHMA
     Dosage: 1 INHALATION
  16. RHINOCORT AQUA [Concomitant]
     Indication: PRODUCT USED FOR UNKNOWN INDICATION
  17. PRILOSEC [Concomitant]
     Indication: PRODUCT USED FOR UNKNOWN INDICATION
  18. PREDNISONE [Concomitant]
     Indication: PRODUCT USED FOR UNKNOWN INDICATION
  19. LIDODERM PATCHES [Concomitant]
     Indication: ARTHRALGIA
  20. TOPAMAX [Concomitant]
     Indication: PROPHYLAXIS
  21. MAXALT [Concomitant]
     Indication: MIGRAINE
  22. AMRIX [Concomitant]
     Indication: MUSCLE SPASMS
  23. CALCIUM [Concomitant]
     Indication: PRODUCT USED FOR UNKNOWN INDICATION
  24. CENTRUM [Concomitant]
     Indication: PRODUCT USED FOR UNKNOWN INDICATION
  25. B12 [Concomitant]
     Indication: PRODUCT USED FOR UNKNOWN INDICATION
  26. IRON [Concomitant]
     Indication: BLOOD IRON DECREASED
  27. VIT D [Concomitant]
     Indication: PRODUCT USED FOR UNKNOWN INDICATION
  28. TYLENOL EXTRA STRENGTH [Concomitant]
     Indication: PAIN

REACTIONS (4)
  - Injection site pain [Not Recovered/Not Resolved]
  - Injection site reaction [Unknown]
  - Hepatic enzyme increased [Not Recovered/Not Resolved]
  - Device malfunction [Unknown]
